FAERS Safety Report 7396833-2 (Version None)
Quarter: 2011Q1

REPORT INFORMATION
  Report Type: 
  Country: None (occurrence: None)
  Receive Date: 20110325
  Receipt Date: 20110218
  Transmission Date: 20110831
  Serious: Yes (Hospitalization)
  Sender: FDA-Public Use
  Company Number: CO-001551

PATIENT
  Sex: Male
  Weight: 15 kg

DRUGS (5)
  1. AMOXICILLIN [Concomitant]
  2. HYDROCORTISONE [Concomitant]
  3. ACETYLCYSTEINE [Concomitant]
  4. OXALAMINE [Concomitant]
  5. NAGLAZYME [Suspect]
     Indication: MUCOPOLYSACCHARIDOSIS VI
     Dosage: 1 MG/KG 1XWEEK, INTRAVENOUS DRIP
     Route: 041
     Dates: start: 20080215

REACTIONS (3)
  - PNEUMONIA [None]
  - CYANOSIS [None]
  - UPPER AIRWAY OBSTRUCTION [None]
